FAERS Safety Report 7753775-8 (Version None)
Quarter: 2011Q3

REPORT INFORMATION
  Report Type: 
  Country: None (occurrence: None)
  Receive Date: 20110913
  Receipt Date: 20110907
  Transmission Date: 20111222
  Serious: Yes (Hospitalization)
  Sender: FDA-Public Use
  Company Number: 2010SP064581

PATIENT
  Age: 50 Year
  Sex: Female

DRUGS (4)
  1. TAXOL W/CARBOPLATIN [Concomitant]
  2. TEMOZOLOMIDE [Suspect]
     Indication: OVARIAN CANCER
     Dosage: PO
     Route: 048
  3. ABT-888 (INVESTIGATIONAL DRUG) [Suspect]
     Indication: OVARIAN CANCER
     Dosage: 40 MG;BID;PO
     Route: 048
  4. TAMOXIFEN CITRATE [Concomitant]

REACTIONS (1)
  - FEBRILE NEUTROPENIA [None]
